FAERS Safety Report 6739735-4 (Version None)
Quarter: 2010Q2

REPORT INFORMATION
  Report Type: 
  Country: None (occurrence: None)
  Receive Date: 20100525
  Receipt Date: 20100519
  Transmission Date: 20101027
  Serious: Yes (Other)
  Sender: FDA-Public Use
  Company Number: DE-ROCHE-704453

PATIENT
  Sex: Female

DRUGS (2)
  1. ROACTEMRA [Suspect]
     Indication: RHEUMATOID ARTHRITIS
     Route: 041
  2. ARAVA [Suspect]
     Indication: RHEUMATOID ARTHRITIS
     Dosage: PATIENTS RECEIVED 20 MG ONCE IN TWO DAYS
     Route: 065

REACTIONS (1)
  - BREAST CANCER [None]
